FAERS Safety Report 16716601 (Version 4)
Quarter: 2021Q4

REPORT INFORMATION
  Report Type: Spontaneous
  Country: US (occurrence: US)
  Receive Date: 20190819
  Receipt Date: 20211222
  Transmission Date: 20220303
  Serious: Yes (Hospitalization)
  Sender: FDA-Public Use
  Company Number: US-VERTEX PHARMACEUTICALS-2019-007613

PATIENT
  Age: 23 Year
  Sex: Male

DRUGS (14)
  1. ORKAMBI [Suspect]
     Active Substance: IVACAFTOR\LUMACAFTOR
     Indication: Cystic fibrosis
     Dosage: 2 DOSAGE FORM (200/125 MG EACH), BID
     Route: 048
     Dates: start: 20150811, end: 20190813
  2. ALBUTEROL [Concomitant]
     Active Substance: ALBUTEROL
  3. DYPHYLLINE [Concomitant]
     Active Substance: DYPHYLLINE
  4. STREPTODORNASE\STREPTOKINASE [Concomitant]
     Active Substance: STREPTODORNASE\STREPTOKINASE
  5. ACTIGALL [Concomitant]
     Active Substance: URSODIOL
  6. NEXIUM I.V. [Concomitant]
     Active Substance: ESOMEPRAZOLE SODIUM
  7. BETHANECHOL [Concomitant]
     Active Substance: BETHANECHOL
  8. TOBI [Concomitant]
     Active Substance: TOBRAMYCIN
  9. CREON [Concomitant]
     Active Substance: PANCRELIPASE AMYLASE\PANCRELIPASE LIPASE\PANCRELIPASE PROTEASE
  10. MIRALAX [Concomitant]
     Active Substance: POLYETHYLENE GLYCOL 3350
  11. CAYSTON [Concomitant]
     Active Substance: AZTREONAM
  12. VERAMYST [Concomitant]
     Active Substance: FLUTICASONE FUROATE
  13. ERYTHROMYCIN [Concomitant]
     Active Substance: ERYTHROMYCIN
  14. SODIUM CHLORIDE [Concomitant]
     Active Substance: SODIUM CHLORIDE

REACTIONS (2)
  - Infective pulmonary exacerbation of cystic fibrosis [Recovered/Resolved]
  - Acute sinusitis [Recovered/Resolved]

NARRATIVE: CASE EVENT DATE: 20190703
